FAERS Safety Report 5446889-9 (Version None)
Quarter: 2007Q3

REPORT INFORMATION
  Report Type: 
  Country: None (occurrence: None)
  Receive Date: 20070907
  Receipt Date: 20070830
  Transmission Date: 20080115
  Serious: Yes (Other)
  Sender: FDA-Public Use
  Company Number: US-PFIZER INC-2007073080

PATIENT
  Sex: Male
  Weight: 81.818 kg

DRUGS (9)
  1. LIPITOR [Suspect]
     Indication: CARDIAC DISORDER
     Route: 048
  2. LIPITOR [Suspect]
     Indication: BLOOD CHOLESTEROL INCREASED
  3. ZETIA [Concomitant]
     Route: 048
  4. ALTACE [Concomitant]
     Route: 048
  5. NORVASC [Concomitant]
     Route: 048
  6. ATENOLOL [Concomitant]
     Route: 048
  7. VITAMIN E [Concomitant]
     Route: 048
  8. CRESTOR [Concomitant]
     Route: 048
  9. VYTORIN [Concomitant]
     Route: 048

REACTIONS (3)
  - ARTERIAL STENOSIS [None]
  - GAIT DISTURBANCE [None]
  - MYALGIA [None]
